FAERS Safety Report 7661952-X (Version None)
Quarter: 2011Q3

REPORT INFORMATION
  Report Type: 
  Country: None (occurrence: None)
  Receive Date: 20110805
  Receipt Date: 20101210
  Transmission Date: 20111222
  Serious: No
  Sender: FDA-Public Use
  Company Number: US-ABBOTT-10P-163-0691509-00

PATIENT
  Sex: Male
  Weight: 81.72 kg

DRUGS (3)
  1. NIASPAN [Suspect]
     Dosage: AT NIGHT
     Dates: start: 20100701
  2. ASPIRIN [Concomitant]
     Indication: PRODUCT USED FOR UNKNOWN INDICATION
     Dosage: IN THE MORNING
  3. NIASPAN [Suspect]
     Indication: HYPERLIPIDAEMIA
     Dosage: IN THE MORNING
     Dates: start: 20100301, end: 20100701

REACTIONS (4)
  - BREAST MASS [None]
  - FLUSHING [None]
  - BREAST DISCOMFORT [None]
  - BLOOD TRIGLYCERIDES ABNORMAL [None]
